FAERS Safety Report 6080059-9 (Version None)
Quarter: 2009Q1

REPORT INFORMATION
  Report Type: 
  Country: None (occurrence: None)
  Receive Date: 20090217
  Receipt Date: 20090204
  Transmission Date: 20090719
  Serious: Yes (Hospitalization)
  Sender: FDA-Public Use
  Company Number: JP-ELI_LILLY_AND_COMPANY-JP200812005719

PATIENT
  Sex: Female
  Weight: 52 kg

DRUGS (6)
  1. ZYPREXA [Suspect]
     Indication: DELUSIONAL DISORDER, UNSPECIFIED TYPE
     Dosage: 10 MG, EACH EVENING
     Route: 048
     Dates: start: 20041111, end: 20070830
  2. THYRADIN S [Concomitant]
     Dosage: 50 UG, DAILY (1/D)
     Route: 048
     Dates: start: 20010801, end: 20070830
  3. EPADEL [Concomitant]
     Dosage: 600 MG, 2/D
     Route: 048
     Dates: start: 20050328, end: 20070830
  4. MECOBALAMIN [Concomitant]
     Dosage: 1.5 MG, 3/D
     Route: 048
     Dates: start: 20050606, end: 20070830
  5. LORAMET [Concomitant]
     Dosage: 1 MG, AS NEEDED
     Route: 048
     Dates: start: 20050829, end: 20070830
  6. INDERAL [Concomitant]
     Dosage: 20 MG, 2/D
     Dates: start: 20050926, end: 20070830

REACTIONS (1)
  - PULMONARY EMBOLISM [None]
